FAERS Safety Report 10428603 (Version 1)
Quarter: 2014Q3

REPORT INFORMATION
  Report Type: Spontaneous
  Country: US (occurrence: US)
  Receive Date: 20140903
  Receipt Date: 20140903
  Transmission Date: 20150326
  Serious: Yes (Other)
  Sender: FDA-Public Use
  Company Number: US-GILEAD-2014-0113497

PATIENT
  Sex: Male

DRUGS (2)
  1. SOVALDI [Suspect]
     Active Substance: SOFOSBUVIR
     Indication: PRODUCT USED FOR UNKNOWN INDICATION
     Dosage: UNK
     Route: 065
  2. OLYSIO [Concomitant]
     Active Substance: SIMEPREVIR

REACTIONS (7)
  - Cholecystectomy [Unknown]
  - Dysphonia [Unknown]
  - Photosensitivity reaction [Unknown]
  - Dry throat [Unknown]
  - Cholelithiasis [Unknown]
  - Nausea [Unknown]
  - Cough [Unknown]
